FAERS Safety Report 5730410-1 (Version None)
Quarter: 2008Q2

REPORT INFORMATION
  Report Type: 
  Country: None (occurrence: None)
  Receive Date: 20080505
  Receipt Date: 20080505
  Transmission Date: 20081010
  Serious: Yes (Life-Threatening, Hospitalization)
  Sender: FDA-Public Use
  Company Number: None

PATIENT
  Age: 67 Year
  Sex: Female

DRUGS (1)
  1. AMIKACIN [Suspect]
     Indication: URINARY TRACT INFECTION
     Dosage: 510MG  DAILY

REACTIONS (8)
  - ACUTE PRERENAL FAILURE [None]
  - CHEST PAIN [None]
  - CULTURE URINE POSITIVE [None]
  - DRUG INTERACTION [None]
  - KLEBSIELLA INFECTION [None]
  - LYMPHOEDEMA [None]
  - PROTEUS INFECTION [None]
  - RENAL FAILURE ACUTE [None]
